FAERS Safety Report 4424632-X (Version None)
Quarter: 2004Q3

REPORT INFORMATION
  Report Type: 
  Country: None (occurrence: None)
  Receive Date: 20040719
  Receipt Date: 20031022
  Transmission Date: 20050211
  Serious: Yes (Hospitalization)
  Sender: FDA-Public Use
  Company Number: 184170

PATIENT
  Age: 37 Year
  Sex: Female
  Weight: 90.7194 kg

DRUGS (12)
  1. AVONEX [Suspect]
     Indication: MULTIPLE SCLEROSIS
     Dosage: 30 MCG QW IM
     Route: 030
     Dates: start: 19980101, end: 19990101
  2. AVONEX [Suspect]
     Indication: MULTIPLE SCLEROSIS
     Dosage: 30 MCG QW IM
     Route: 030
     Dates: start: 20010101
  3. ZYRTEC [Concomitant]
  4. DETROL [Concomitant]
  5. BIRTH CONTROL PILLS [Concomitant]
  6. ORTHO CYCLEN-28 [Concomitant]
  7. DOXEPIN HCL [Concomitant]
  8. MINOCYCLINE HCL [Concomitant]
  9. BACLOFEN [Concomitant]
  10. CARBAMAZEPINE [Concomitant]
  11. MODAFINIL [Concomitant]
  12. RANITIDINE [Concomitant]

REACTIONS (12)
  - ASPIRATION [None]
  - DEPRESSION [None]
  - FALL [None]
  - FATIGUE [None]
  - FOOT FRACTURE [None]
  - MIGRAINE [None]
  - MULTIPLE SCLEROSIS [None]
  - MUSCLE SPASTICITY [None]
  - NEUROPATHIC PAIN [None]
  - PYREXIA [None]
  - TINNITUS [None]
  - VOMITING [None]
